FAERS Safety Report 12543976 (Version 1)
Quarter: 2016Q3

REPORT INFORMATION
  Report Type: Spontaneous
  Country: US (occurrence: None)
  Receive Date: 20160708
  Receipt Date: 20160708
  Transmission Date: 20161109
  Serious: Yes (Other)
  Sender: FDA-Public Use
  Company Number: None

PATIENT
  Age: 35 Year
  Sex: Female
  Weight: 70 kg

DRUGS (1)
  1. LUPRON [Suspect]
     Active Substance: LEUPROLIDE ACETATE
     Indication: NEOPLASM MALIGNANT
     Dosage: 30 MG Q 4 MONTHS INTRAMUSCULAR
     Route: 030

REACTIONS (4)
  - Product container seal issue [None]
  - Device malfunction [None]
  - Needle issue [None]
  - Injury associated with device [None]

NARRATIVE: CASE EVENT DATE: 20160706
